FAERS Safety Report 18123032 (Version 3)
Quarter: 2020Q4

REPORT INFORMATION
  Report Type: Report from Study
  Country: BR (occurrence: BR)
  Receive Date: 20200807
  Receipt Date: 20201110
  Transmission Date: 20210113
  Serious: Yes (Other)
  Sender: FDA-Public Use
  Company Number: BR-UCBSA-2020030370

PATIENT
  Age: 61 Year
  Sex: Female
  Weight: 67 kg

DRUGS (10)
  1. METICORTEN [Concomitant]
     Active Substance: PREDNISONE
     Indication: RHEUMATOID ARTHRITIS
     Dosage: 5 MILLIGRAM, ONCE DAILY (QD)
     Route: 048
     Dates: start: 2010
  2. METOTREXATO [METHOTREXATE] [Concomitant]
     Active Substance: METHOTREXATE
     Indication: RHEUMATOID ARTHRITIS
     Dosage: UNK
     Route: 048
     Dates: start: 202005
  3. ROSUVASTATIN CALCIUM. [Concomitant]
     Active Substance: ROSUVASTATIN CALCIUM
     Indication: BLOOD CHOLESTEROL
     Dosage: 20 MILLIGRAM, ONCE DAILY (QD)
     Route: 048
     Dates: start: 2010
  4. PREGABALINA [Concomitant]
     Active Substance: PREGABALIN
     Indication: FIBROMYALGIA
     Dosage: 300 MILLIGRAM, ONCE DAILY (QD)
     Route: 048
     Dates: start: 202002
  5. CERTOLIZUMAB PEGOL RA [Suspect]
     Active Substance: CERTOLIZUMAB PEGOL
     Indication: RHEUMATOID ARTHRITIS
     Dosage: 400 MILLIGRAM, MONTHLY (QM)
     Route: 058
     Dates: start: 20200312
  6. VELIJA [Concomitant]
     Active Substance: DULOXETINE HYDROCHLORIDE
     Indication: FIBROMYALGIA
     Dosage: 60 MILLIGRAM, ONCE DAILY (QD)
     Route: 048
     Dates: start: 2010
  7. FOLIC ACID. [Concomitant]
     Active Substance: FOLIC ACID
     Indication: RHEUMATOID ARTHRITIS
     Dosage: 5 MILLIGRAM, WEEKLY (QW)
     Route: 048
     Dates: start: 202005
  8. STILNOX [Concomitant]
     Active Substance: ZOLPIDEM TARTRATE
     Indication: INSOMNIA
     Dosage: 10 MILLIGRAM, ONCE DAILY (QD)
     Route: 048
     Dates: start: 2011
  9. ARAVA [Concomitant]
     Active Substance: LEFLUNOMIDE
     Indication: RHEUMATOID ARTHRITIS
     Dosage: 20 MILLIGRAM, ONCE DAILY (QD)
     Route: 048
     Dates: start: 2010
  10. STABIL [PROCHLORPERAZINE MALEATE] [Concomitant]
     Indication: PRODUCT USED FOR UNKNOWN INDICATION
     Dosage: 0.125 MILLIGRAM, ONCE DAILY (QD)
     Route: 048
     Dates: start: 2014

REACTIONS (3)
  - Hypersensitivity [Recovering/Resolving]
  - Weight increased [Not Recovered/Not Resolved]
  - Dry skin [Not Recovered/Not Resolved]

NARRATIVE: CASE EVENT DATE: 2020
